FAERS Safety Report 7103157-7 (Version None)
Quarter: 2010Q4

REPORT INFORMATION
  Report Type: 
  Country: None (occurrence: None)
  Receive Date: 20101108
  Receipt Date: 20101018
  Transmission Date: 20110411
  Serious: Yes (Death, Hospitalization)
  Sender: FDA-Public Use
  Company Number: P0546

PATIENT
  Age: 76 Year
  Sex: Male

DRUGS (8)
  1. APC8015/5000/2000 (INFUSION) [Suspect]
     Indication: PROSTATE CANCER METASTATIC
     Dosage: INTRAVENOUS ; INTRAVENOUS ; INTRAVENOUS
     Route: 042
     Dates: start: 20100813, end: 20100813
  2. APC8015/5000/2000 (INFUSION) [Suspect]
     Indication: PROSTATE CANCER METASTATIC
     Dosage: INTRAVENOUS ; INTRAVENOUS ; INTRAVENOUS
     Route: 042
     Dates: start: 20100827, end: 20100827
  3. APC8015/5000/2000 (INFUSION) [Suspect]
     Indication: PROSTATE CANCER METASTATIC
     Dosage: INTRAVENOUS ; INTRAVENOUS ; INTRAVENOUS
     Route: 042
     Dates: start: 20100910, end: 20100910
  4. ZOLPIDEM [Concomitant]
  5. ACETAMINOPHEN W/CODEINE (CODEINE, PARACETAMOL) (TABLETS) [Concomitant]
  6. AMOXICILLIN [Concomitant]
  7. LUPRON [Concomitant]
  8. METOPROLOL SUCCINATE [Concomitant]

REACTIONS (7)
  - ANAEMIA [None]
  - ANGINA UNSTABLE [None]
  - CARDIAC DISORDER [None]
  - CHEST PAIN [None]
  - CORONARY ARTERY OCCLUSION [None]
  - ELECTROCARDIOGRAM ST SEGMENT DEPRESSION [None]
  - UNRESPONSIVE TO STIMULI [None]
